FAERS Safety Report 16491309 (Version 1)
Quarter: 2019Q2

REPORT INFORMATION
  Report Type: Spontaneous
  Country: US (occurrence: US)
  Receive Date: 20190628
  Receipt Date: 20190628
  Transmission Date: 20190711
  Serious: Yes (Other)
  Sender: FDA-Public Use
  Company Number: US-SUN PHARMACEUTICAL INDUSTRIES LTD-2019RR-211702

PATIENT
  Age: 31 Year
  Sex: Male

DRUGS (1)
  1. LOPERAMIDE [Suspect]
     Active Substance: LOPERAMIDE
     Indication: PRODUCT USED FOR UNKNOWN INDICATION
     Dosage: 50 DOSAGE FORM UNK; HE HAD BEEN DOING ON ALTERNATING DAYS FOR AT LEAST A MONTH
     Route: 065

REACTIONS (2)
  - Cardiotoxicity [Unknown]
  - Drug abuse [Unknown]
